FAERS Safety Report 5366801-0 (Version None)
Quarter: 2007Q2

REPORT INFORMATION
  Report Type: 
  Country: None (occurrence: None)
  Receive Date: 20070622
  Receipt Date: 20060712
  Transmission Date: 20071010
  Serious: No
  Sender: FDA-Public Use
  Company Number: A0612341A

PATIENT
  Sex: Female

DRUGS (1)
  1. ZYBAN [Suspect]
     Indication: DRUG USE FOR UNKNOWN INDICATION
     Route: 048
     Dates: start: 20030101

REACTIONS (2)
  - HYPERSENSITIVITY [None]
  - URTICARIA [None]
